FAERS Safety Report 9753487 (Version 2)
Quarter: 2013Q4

REPORT INFORMATION
  Report Type: Spontaneous
  Country: US (occurrence: US)
  Receive Date: 20131213
  Receipt Date: 20131213
  Transmission Date: 20140711
  Serious: Yes (Other)
  Sender: FDA-Public Use
  Company Number: US-TEVA-404550USA

PATIENT
  Age: 40 Year
  Sex: Female
  Weight: 62.2 kg

DRUGS (2)
  1. PARAGARD 380A [Suspect]
     Indication: CONTRACEPTION
     Route: 015
     Dates: start: 200810, end: 20130507
  2. MULTIVITAMIN [Concomitant]

REACTIONS (2)
  - Device breakage [Recovering/Resolving]
  - Device expulsion [Recovered/Resolved]
